FAERS Safety Report 25142780 (Version 1)
Quarter: 2025Q1

REPORT INFORMATION
  Report Type: Report from Study
  Country: AR (occurrence: AR)
  Receive Date: 20250331
  Receipt Date: 20250331
  Transmission Date: 20250409
  Serious: Yes (Other)
  Sender: ABBVIE
  Company Number: AR-ABBVIE-6204374

PATIENT
  Sex: Female

DRUGS (1)
  1. RINVOQ [Suspect]
     Active Substance: UPADACITINIB
     Indication: Rheumatoid arthritis
     Dosage: RINVOQ 15MG X 30 TABLETS
     Route: 048
     Dates: start: 20220601

REACTIONS (3)
  - Surgery [Unknown]
  - Gastric bypass [Unknown]
  - Flap surgery [Recovering/Resolving]

NARRATIVE: CASE EVENT DATE: 20250101
